FAERS Safety Report 15676203 (Version 1)
Quarter: 2018Q4

REPORT INFORMATION
  Report Type: Spontaneous
  Country: IN (occurrence: IN)
  Receive Date: 20181129
  Receipt Date: 20181129
  Transmission Date: 20190205
  Serious: No
  Sender: FDA-Public Use
  Company Number: None

PATIENT
  Age: 27 Year
  Sex: Male
  Weight: 79 kg

DRUGS (2)
  1. EVION [Concomitant]
     Active Substance: .ALPHA.-TOCOPHEROL ACETATE
  2. KZ PLUS LOTION [Suspect]
     Active Substance: KETOCONAZOLE\PYRITHIONE ZINC
     Indication: DANDRUFF

REACTIONS (2)
  - Dandruff [None]
  - Condition aggravated [None]

NARRATIVE: CASE EVENT DATE: 20181129
